FAERS Safety Report 7457646-6 (Version None)
Quarter: 2011Q1

REPORT INFORMATION
  Report Type: 
  Country: None (occurrence: None)
  Receive Date: 20110302
  Receipt Date: 20101109
  Transmission Date: 20110831
  Serious: Yes (Hospitalization, Other)
  Sender: FDA-Public Use
  Company Number: 163-21880-10090369

PATIENT
  Age: 79 Year
  Sex: Female

DRUGS (26)
  1. BACTRIM [Concomitant]
  2. SCOPOLOMINE (HYOSCINE BUTYLBROMIDE) [Concomitant]
  3. POTASSIUM CHLORIDE [Concomitant]
  4. FENTANYL [Concomitant]
  5. SENNA (SENNA) [Concomitant]
  6. LACTULOSE [Concomitant]
  7. METHOCARBAMOL [Concomitant]
  8. DEXAMETHASONE [Concomitant]
  9. DOCUSATE SODIUM (DOCUSATE SODIUM) [Concomitant]
  10. ACETAMINOPHEN [Concomitant]
  11. MECLIZINE [Concomitant]
  12. TOLTERODINE TARTRATE [Concomitant]
  13. LASIX [Concomitant]
  14. ASPIRIN [Concomitant]
  15. REVLIMID [Suspect]
     Indication: MULTIPLE MYELOMA
     Dosage: 25 MG, 3 WEEKS ON, 1 WEEK OFF, PO, 10 MG, DAILY X 21 DAYS, PO
     Route: 048
     Dates: start: 20100701
  16. REVLIMID [Suspect]
     Indication: MULTIPLE MYELOMA
     Dosage: 25 MG, 3 WEEKS ON, 1 WEEK OFF, PO, 10 MG, DAILY X 21 DAYS, PO
     Route: 048
     Dates: start: 20091123, end: 20100608
  17. BISACODYL (BISACODYL) [Concomitant]
  18. NITROFURANTOIN [Concomitant]
  19. MAGNESIUM HYDROXIDE TAB [Concomitant]
  20. LIDODERM [Concomitant]
  21. IBUPROFEN [Concomitant]
  22. OXYCODONE HCL [Concomitant]
  23. RIFAMPIN (RIFAMPICIN) [Concomitant]
  24. DIPHENHYDRAMINE HCL [Concomitant]
  25. VICODIN [Concomitant]
  26. TRAZODONE (TRAZODONE) [Concomitant]

REACTIONS (5)
  - STAPHYLOCOCCAL INFECTION [None]
  - OSTEOMYELITIS [None]
  - WHITE BLOOD CELL COUNT DECREASED [None]
  - URINARY TRACT INFECTION [None]
  - NEUTROPHIL COUNT DECREASED [None]
